FAERS Safety Report 4935699-4 (Version None)
Quarter: 2006Q1

REPORT INFORMATION
  Report Type: 
  Country: None (occurrence: None)
  Receive Date: 20060307
  Receipt Date: 20051107
  Transmission Date: 20060701
  Serious: No
  Sender: FDA-Public Use
  Company Number: US-GLAXOSMITHKLINE-A0581456A

PATIENT
  Age: 70 Year
  Sex: Female

DRUGS (6)
  1. REQUIP [Suspect]
     Indication: RESTLESS LEGS SYNDROME
     Dosage: .5MG PER DAY
     Route: 048
     Dates: start: 20051104
  2. NEURONTIN [Concomitant]
  3. COUMADIN [Concomitant]
  4. CRESTOR [Concomitant]
  5. ELAVIL [Concomitant]
  6. ACE INHIBITOR [Concomitant]

REACTIONS (1)
  - RASH [None]
